FAERS Safety Report 9871433 (Version 1)
Quarter: 2014Q1

REPORT INFORMATION
  Report Type: Spontaneous
  Country: US (occurrence: None)
  Receive Date: 20140204
  Receipt Date: 20140204
  Transmission Date: 20141002
  Serious: Yes (Hospitalization)
  Sender: FDA-Public Use
  Company Number: None

PATIENT
  Age: 55 Year
  Sex: Female
  Weight: 138 kg

DRUGS (22)
  1. APIXABAN [Suspect]
     Indication: THROMBOSIS
  2. APIXABAN [Suspect]
     Indication: ANTITHROMBIN III DEFICIENCY
  3. CILOSTAZOL [Concomitant]
  4. CYMBALTA [Concomitant]
  5. DILTIAZEM [Concomitant]
  6. FAMOTIDINE [Concomitant]
  7. FERROU SULFATE [Concomitant]
  8. GABAPENTIN [Concomitant]
  9. LASIX [Concomitant]
  10. LEVEMIR [Concomitant]
  11. LYRICA [Concomitant]
  12. LYRICA [Concomitant]
  13. OMEPRAZOLE [Concomitant]
  14. OXYCONTIN [Concomitant]
  15. PLAVIX [Concomitant]
  16. RISPERIDONE [Concomitant]
  17. SENOKOT [Concomitant]
  18. SIMETHICONE [Concomitant]
  19. ALBUTEROL [Concomitant]
  20. ALPRAZOLAM [Concomitant]
  21. BISACODYL [Concomitant]
  22. ATROVENT [Concomitant]

REACTIONS (2)
  - Abdominal wall haematoma [None]
  - Intra-abdominal haemorrhage [None]
